FAERS Safety Report 18746917 (Version 6)
Quarter: 2021Q2

REPORT INFORMATION
  Report Type: Report from Study
  Country: US (occurrence: US)
  Receive Date: 20210115
  Receipt Date: 20210503
  Transmission Date: 20210717
  Serious: Yes (Death, Hospitalization, Other)
  Sender: FDA-Public Use
  Company Number: US-TAKEDA-US202002008

PATIENT
  Sex: Female
  Weight: 63 kg

DRUGS (27)
  1. LANADELUMAB [Suspect]
     Active Substance: LANADELUMAB
     Indication: ESSENTIAL HYPERTENSION
     Dosage: 300 MILLIGRAM, Q2WEEKS
     Route: 058
  2. LANADELUMAB [Suspect]
     Active Substance: LANADELUMAB
     Indication: DIABETES MELLITUS
     Dosage: 300 MILLIGRAM, Q2WEEKS
     Route: 058
     Dates: start: 20201216
  3. FIRAZYR [Suspect]
     Active Substance: ICATIBANT ACETATE
     Indication: IMMUNE SYSTEM DISORDER
     Dosage: 30 MILLIGRAM, AS REQ^D
     Route: 058
     Dates: start: 20191125
  4. ALLEGRA [Concomitant]
     Active Substance: FEXOFENADINE HYDROCHLORIDE
     Dosage: UNK
     Route: 065
  5. POTASSIUM [Concomitant]
     Active Substance: POTASSIUM
     Dosage: UNK
     Route: 065
  6. BENTYL [Concomitant]
     Active Substance: DICYCLOMINE HYDROCHLORIDE
     Dosage: UNK
     Route: 065
  7. LANADELUMAB [Suspect]
     Active Substance: LANADELUMAB
     Indication: OSTEOARTHRITIS
     Dosage: 300 MILLIGRAM, Q2WEEKS
     Route: 058
     Dates: start: 20201223
  8. FIRAZYR [Suspect]
     Active Substance: ICATIBANT ACETATE
     Indication: ESSENTIAL HYPERTENSION
     Dosage: 30 MILLIGRAM, AS REQ^D
     Route: 058
     Dates: start: 20130731
  9. FIRAZYR [Suspect]
     Active Substance: ICATIBANT ACETATE
     Indication: IMMUNE SYSTEM DISORDER
     Dosage: 30 MILLIGRAM, AS REQ^D
     Route: 058
     Dates: start: 20191125
  10. FIRAZYR [Suspect]
     Active Substance: ICATIBANT ACETATE
     Indication: OSTEOARTHRITIS
     Dosage: 30 MILLIGRAM
     Route: 058
     Dates: start: 20160105
  11. FIRAZYR [Suspect]
     Active Substance: ICATIBANT ACETATE
     Indication: OSTEOARTHRITIS
     Dosage: 30 MILLIGRAM
     Route: 058
     Dates: start: 20160105
  12. HYZAAR [Concomitant]
     Active Substance: HYDROCHLOROTHIAZIDE\LOSARTAN POTASSIUM
     Dosage: UNK
     Route: 065
  13. ICATIBANT [Concomitant]
     Active Substance: ICATIBANT ACETATE
     Dosage: UNK
     Route: 065
  14. FIRAZYR [Suspect]
     Active Substance: ICATIBANT ACETATE
     Indication: DIABETES MELLITUS
     Dosage: 30 MILLIGRAM, AS REQ^D
     Route: 058
     Dates: start: 20121227
  15. VITAMIN B12 [Concomitant]
     Active Substance: CYANOCOBALAMIN
     Dosage: UNK
     Route: 065
  16. FIRAZYR [Suspect]
     Active Substance: ICATIBANT ACETATE
     Indication: DIABETES MELLITUS
     Dosage: 30 MILLIGRAM, AS REQ^D
     Route: 058
     Dates: start: 20121227
  17. SIMVASTATIN. [Concomitant]
     Active Substance: SIMVASTATIN
     Dosage: UNK
     Route: 065
  18. RANITIDINE. [Concomitant]
     Active Substance: RANITIDINE
     Dosage: UNK
     Route: 065
  19. METHOCARBAMOL. [Concomitant]
     Active Substance: METHOCARBAMOL
     Dosage: UNK
     Route: 065
  20. PREMARIN [Concomitant]
     Active Substance: ESTROGENS, CONJUGATED
     Dosage: UNK
     Route: 065
  21. HYDROXYZINE [Concomitant]
     Active Substance: HYDROXYZINE HYDROCHLORIDE
     Dosage: UNK
     Route: 065
  22. FIRAZYR [Suspect]
     Active Substance: ICATIBANT ACETATE
     Indication: ESSENTIAL HYPERTENSION
     Dosage: 30 MILLIGRAM, AS REQ^D
     Route: 058
     Dates: start: 20130731
  23. BUSPAR [Concomitant]
     Active Substance: BUSPIRONE HYDROCHLORIDE
     Dosage: UNK
     Route: 065
  24. LANADELUMAB [Suspect]
     Active Substance: LANADELUMAB
     Indication: IMMUNE SYSTEM DISORDER
     Dosage: 30 MILLIGRAM
     Route: 058
     Dates: start: 20201212
  25. GABAPENTIN. [Concomitant]
     Active Substance: GABAPENTIN
     Dosage: UNK
     Route: 065
  26. MOBIC [Concomitant]
     Active Substance: MELOXICAM
     Dosage: UNK
     Route: 065
  27. METFORMIN [Concomitant]
     Active Substance: METFORMIN HYDROCHLORIDE
     Dosage: UNK
     Route: 065

REACTIONS (7)
  - Death [Fatal]
  - Cerebrovascular accident [Unknown]
  - COVID-19 [Unknown]
  - Ear infection [Unknown]
  - Decreased activity [Unknown]
  - Urinary tract infection [Not Recovered/Not Resolved]
  - Hereditary angioedema [Unknown]
